FAERS Safety Report 24445442 (Version 6)
Quarter: 2025Q3

REPORT INFORMATION
  Report Type: Spontaneous
  Country: JP (occurrence: JP)
  Receive Date: 20241016
  Receipt Date: 20250729
  Transmission Date: 20251021
  Serious: Yes (Hospitalization, Other)
  Sender: ALEXION PHARMACEUTICALS
  Company Number: JP-ASTRAZENECA-240106628_032620_P_1

PATIENT
  Age: 32 Year
  Sex: Female

DRUGS (10)
  1. FASENRA [Suspect]
     Active Substance: BENRALIZUMAB
     Indication: Asthma
     Dosage: 30 MILLIGRAM, Q3W
     Dates: start: 20241002, end: 20241002
  2. FASENRA [Suspect]
     Active Substance: BENRALIZUMAB
  3. BILASTINE [Concomitant]
     Active Substance: BILASTINE
     Route: 065
  4. THEOPHYLLINE ANHYDROUS [Concomitant]
     Active Substance: THEOPHYLLINE ANHYDROUS
     Route: 065
  5. PREDONINE [Concomitant]
     Active Substance: PREDNISOLONE
  6. PREDONINE [Concomitant]
     Active Substance: PREDNISOLONE
  7. RABEPRAZOLE SODIUM [Concomitant]
     Active Substance: RABEPRAZOLE SODIUM
     Route: 065
  8. BUDESONIDE [Concomitant]
     Active Substance: BUDESONIDE
  9. BUDESONIDE [Concomitant]
     Active Substance: BUDESONIDE
  10. SINGULAIR [Concomitant]
     Active Substance: MONTELUKAST SODIUM
     Route: 065

REACTIONS (12)
  - Abdominal discomfort [Recovered/Resolved]
  - Anaphylactic reaction [Recovering/Resolving]
  - Pyrexia [Recovering/Resolving]
  - Asthma [Recovering/Resolving]
  - Fall [Unknown]
  - Nausea [Unknown]
  - Headache [Unknown]
  - Dizziness [Unknown]
  - Gait disturbance [Unknown]
  - Loss of consciousness [Unknown]
  - Pain in extremity [Not Recovered/Not Resolved]
  - Physical deconditioning [Unknown]

NARRATIVE: CASE EVENT DATE: 20240101
